FAERS Safety Report 5658153-3 (Version None)
Quarter: 2008Q1

REPORT INFORMATION
  Report Type: 
  Country: None (occurrence: None)
  Receive Date: 20080310
  Receipt Date: 20070129
  Transmission Date: 20080703
  Serious: No
  Sender: FDA-Public Use
  Company Number: US-BAYER-200710063BCC

PATIENT
  Sex: Male
  Weight: 93 kg

DRUGS (2)
  1. ALEVE [Suspect]
     Indication: ARTHRITIS
     Dosage: UNIT DOSE: 220 MG
     Route: 048
  2. VITAMINS [Concomitant]

REACTIONS (2)
  - FOREIGN BODY TRAUMA [None]
  - OESOPHAGEAL PAIN [None]
